FAERS Safety Report 7897942-1 (Version None)
Quarter: 2011Q4

REPORT INFORMATION
  Report Type: 
  Country: None (occurrence: None)
  Receive Date: 20111107
  Receipt Date: 20111031
  Transmission Date: 20120403
  Serious: Yes (Hospitalization)
  Sender: FDA-Public Use
  Company Number: US-ABBOTT-11P-163-0870512-00

PATIENT
  Sex: Female
  Weight: 98.518 kg

DRUGS (3)
  1. LUPRON DEPOT [Suspect]
     Indication: UTERINE LEIOMYOMA
     Dates: start: 20110601
  2. DEXILANT [Concomitant]
     Indication: GASTRIC DISORDER
  3. IRON SUPPLEMENT [Concomitant]
     Indication: IRON DEFICIENCY

REACTIONS (4)
  - SWELLING FACE [None]
  - ARTHRALGIA [None]
  - CHOLELITHIASIS [None]
  - JOINT SWELLING [None]
